FAERS Safety Report 4726419-7 (Version None)
Quarter: 2005Q3

REPORT INFORMATION
  Report Type: 
  Country: None (occurrence: None)
  Receive Date: 20050726
  Receipt Date: 20050222
  Transmission Date: 20060218
  Serious: No
  Sender: FDA-Public Use
  Company Number: REM_00085_2005

PATIENT
  Sex: Female

DRUGS (13)
  1. REMODULIN [Suspect]
     Indication: PULMONARY HYPERTENSION
     Dosage: 66 NG/KG/MIN CONTINUOUS SC
     Route: 058
     Dates: start: 20021219
  2. AMOXICILLIN [Suspect]
  3. PLO-GEL - CURRENT FORMULA D [Concomitant]
  4. LASIX [Concomitant]
  5. POTASSIUM CHLORIDE [Concomitant]
  6. SYNHROID [Concomitant]
  7. LANOXIN [Concomitant]
  8. MULTI-VITAMINS [Concomitant]
  9. VIAGRA [Concomitant]
  10. CALCIUM GLUCONATE [Concomitant]
  11. ALDACTONE [Concomitant]
  12. COUMADIN [Concomitant]
  13. ACETAMINOPHEN [Concomitant]

REACTIONS (5)
  - DYSPNOEA EXACERBATED [None]
  - FLUSHING [None]
  - HEADACHE [None]
  - INFUSION SITE PAIN [None]
  - RASH [None]
